FAERS Safety Report 7244822-0 (Version None)
Quarter: 2011Q1

REPORT INFORMATION
  Report Type: 
  Country: None (occurrence: None)
  Receive Date: 20110126
  Receipt Date: 20110117
  Transmission Date: 20110831
  Serious: Yes (Life-Threatening, Hospitalization)
  Sender: FDA-Public Use
  Company Number: JP-PFIZER INC-2010162931

PATIENT
  Age: 54 Year
  Sex: Female
  Weight: 46 kg

DRUGS (9)
  1. CELECOXIB [Suspect]
     Dosage: 200 MG, UNKNOWN/D
     Route: 048
     Dates: start: 20100929, end: 20101104
  2. INFLUENZA VIRUS VACCINE POLYVALENT [Suspect]
     Dosage: UNK
     Dates: start: 20101104, end: 20101104
  3. ACINON [Concomitant]
     Indication: ABDOMINAL PAIN UPPER
     Dosage: UNK
     Route: 048
     Dates: start: 20101020, end: 20101104
  4. MYONAL [Concomitant]
     Indication: MUSCULOSKELETAL PAIN
     Dosage: UNK
     Route: 048
     Dates: start: 20101020, end: 20101104
  5. CELECOXIB [Suspect]
     Indication: MUSCULOSKELETAL PAIN
     Dosage: 200 MG, UNK
     Route: 048
     Dates: start: 20100201
  6. PRAVASTATIN SODIUM [Concomitant]
     Indication: HYPERCHOLESTEROLAEMIA
     Dosage: UNK
     Route: 048
     Dates: start: 20101006, end: 20101104
  7. SELBEX [Concomitant]
     Indication: ABDOMINAL PAIN UPPER
     Dosage: UNK
     Route: 048
     Dates: start: 20100929, end: 20101104
  8. GASMOTIN [Suspect]
     Indication: ABDOMINAL DISCOMFORT
     Dosage: 15 MG, UNK
     Route: 048
     Dates: start: 20100929, end: 20101104
  9. ISODINE [Concomitant]
     Dosage: UNK
     Dates: start: 20100201

REACTIONS (2)
  - RESPIRATORY TRACT OEDEMA [None]
  - ACUTE RESPIRATORY FAILURE [None]
